FAERS Safety Report 6416468-5 (Version None)
Quarter: 2009Q4

REPORT INFORMATION
  Report Type: 
  Country: None (occurrence: None)
  Receive Date: 20091027
  Receipt Date: 20091027
  Transmission Date: 20100525
  Serious: Yes (Life-Threatening, Other)
  Sender: FDA-Public Use
  Company Number: US-ROXANE LABORATORIES, INC.-2009-RO-01103RO

PATIENT
  Age: 66 Year
  Sex: Female

DRUGS (1)
  1. MORPHINE [Suspect]

REACTIONS (3)
  - APPARENT DEATH [None]
  - OVERDOSE [None]
  - RESPIRATORY RATE DECREASED [None]
